FAERS Safety Report 6969220-6 (Version None)
Quarter: 2010Q3

REPORT INFORMATION
  Report Type: 
  Country: None (occurrence: None)
  Receive Date: 20100902
  Receipt Date: 20100820
  Transmission Date: 20110219
  Serious: Yes (Other)
  Sender: FDA-Public Use
  Company Number: 2010SP045402

PATIENT
  Age: 38 Year
  Sex: Female
  Weight: 65 kg

DRUGS (2)
  1. CERAZETTE (DESOGESTREL / 00754001/ ) [Suspect]
     Indication: CONTRACEPTION
     Dosage: UNK; PO
     Route: 048
     Dates: start: 20080101, end: 20100814
  2. CERAZETTE (DESOGESTREL / 00754001/ ) [Suspect]
     Indication: PREMENSTRUAL SYNDROME
     Dosage: UNK; PO
     Route: 048
     Dates: start: 20080101, end: 20100814

REACTIONS (3)
  - HYPERTENSION [None]
  - MENSTRUATION IRREGULAR [None]
  - OFF LABEL USE [None]
